FAERS Safety Report 17253745 (Version 1)
Quarter: 2020Q1

REPORT INFORMATION
  Report Type: Spontaneous
  Country: FR (occurrence: FR)
  Receive Date: 20200109
  Receipt Date: 20200109
  Transmission Date: 20200409
  Serious: Yes (Life-Threatening, Hospitalization)
  Sender: FDA-Public Use
  Company Number: FR-MYLANLABS-2020M1002916

PATIENT
  Age: 43 Year
  Sex: Female
  Weight: 85 kg

DRUGS (5)
  1. SUFENTA [Suspect]
     Active Substance: SUFENTANIL CITRATE
     Indication: ANAESTHESIA
     Dosage: 15 MILLIGRAM
     Route: 042
     Dates: start: 20190910, end: 20190910
  2. TRACRIUM [Suspect]
     Active Substance: ATRACURIUM BESYLATE
     Indication: ANAESTHESIA
     Dosage: 40 MILLIGRAM
     Route: 042
     Dates: start: 20190910, end: 20190910
  3. MIDAZOLAM HYDROCHLORIDE. [Suspect]
     Active Substance: MIDAZOLAM HYDROCHLORIDE
     Indication: ANAESTHESIA
     Dosage: 1 MILLIGRAM
     Route: 042
     Dates: start: 20190910, end: 20190910
  4. KETAMINE [Suspect]
     Active Substance: KETAMINE
     Indication: ANAESTHESIA
     Dosage: 20 MILLIGRAM
     Route: 042
     Dates: start: 20190910, end: 20190910
  5. PROPOFOL. [Concomitant]
     Active Substance: PROPOFOL
     Indication: ANAESTHESIA
     Dosage: 240 MILLIGRAM
     Route: 042
     Dates: start: 20190910, end: 20190910

REACTIONS (1)
  - Anaphylactic shock [Recovered/Resolved]

NARRATIVE: CASE EVENT DATE: 20190910
